FAERS Safety Report 16095701 (Version 1)
Quarter: 2019Q2

REPORT INFORMATION
  Report Type: Spontaneous
  Country: US (occurrence: US)
  Receive Date: 20190320
  Receipt Date: 20190320
  Transmission Date: 20190711
  Serious: Yes (Other)
  Sender: FDA-Public Use
  Company Number: None

PATIENT
  Age: 42 Year
  Sex: Female
  Weight: 72.9 kg

DRUGS (1)
  1. C-NITROGLYCERIN OINTMENT 0.125% [Suspect]
     Active Substance: NITROGLYCERIN
     Dosage: ?          OTHER STRENGTH:SMALL AMOUNT;QUANTITY:1 SMALL AMOUNT;?
     Route: 054
     Dates: start: 20190314, end: 20190320

REACTIONS (1)
  - Blood pressure increased [None]

NARRATIVE: CASE EVENT DATE: 20190315
